FAERS Safety Report 15979171 (Version 2)
Quarter: 2019Q1

REPORT INFORMATION
  Report Type: Spontaneous
  Country: BR (occurrence: BR)
  Receive Date: 20190219
  Receipt Date: 20190305
  Transmission Date: 20190418
  Serious: Yes (Other)
  Sender: FDA-Public Use
  Company Number: BR-SA-2019SA027228

PATIENT
  Sex: Female
  Weight: 65 kg

DRUGS (10)
  1. LOSARTAN POTASSIUM. [Concomitant]
     Active Substance: LOSARTAN POTASSIUM
     Indication: BLOOD PRESSURE INCREASED
     Dosage: UNK, QD
     Route: 048
     Dates: start: 2016
  2. MOTORE [Concomitant]
     Indication: OSTEOARTHRITIS
  3. PREGABALIN. [Concomitant]
     Active Substance: PREGABALIN
     Indication: PAIN
     Dosage: UNK UNK, QD
     Route: 048
     Dates: start: 201807
  4. AMLODIPINE BESYLATE. [Concomitant]
     Active Substance: AMLODIPINE BESYLATE
     Indication: BLOOD PRESSURE INCREASED
     Dosage: UNK, QD
     Route: 048
     Dates: start: 2016
  5. SOMALGIN CARDIO [Concomitant]
     Active Substance: ASPIRIN\DIHYDROXYALUMINUM AMINOACETATE ANHYDROUS\MAGNESIUM CARBONATE
     Indication: CARDIAC DISORDER
     Dosage: UNK UNK, QD
     Route: 048
     Dates: start: 201810
  6. ARAVA [Suspect]
     Active Substance: LEFLUNOMIDE
     Indication: OSTEOARTHRITIS
  7. MOTORE [Concomitant]
     Indication: ARTHRITIS
     Dosage: 2 PER NIGHT
     Route: 048
     Dates: start: 200810
  8. ARAVA [Suspect]
     Active Substance: LEFLUNOMIDE
     Indication: ARTHRITIS
     Dosage: 1 TABLET PER DAY
     Route: 048
     Dates: start: 201810
  9. SERTRALINE [SERTRALINE HYDROCHLORIDE] [Concomitant]
     Indication: SEDATION COMPLICATION
     Dosage: UNK UNK, BID
     Route: 048
     Dates: start: 2014
  10. LACRIMA PLUS [Concomitant]
     Active Substance: DEXTRAN 70\HYPROMELLOSES
     Indication: DRY EYE
     Dosage: 3 OR 4 TIMES A DAY
     Dates: start: 2014

REACTIONS (10)
  - Peripheral swelling [Recovering/Resolving]
  - Finger deformity [Recovering/Resolving]
  - Burning sensation [Recovering/Resolving]
  - Drug ineffective [Unknown]
  - Surgery [Unknown]
  - Product use issue [Unknown]
  - Pain [Unknown]
  - Cardiac pacemaker insertion [Recovering/Resolving]
  - Osteoporosis [Unknown]
  - Pain in extremity [Not Recovered/Not Resolved]

NARRATIVE: CASE EVENT DATE: 201809
